FAERS Safety Report 19239138 (Version 5)
Quarter: 2021Q4

REPORT INFORMATION
  Report Type: Report from Study
  Country: US (occurrence: US)
  Receive Date: 20210510
  Receipt Date: 20211117
  Transmission Date: 20220303
  Serious: Yes (Hospitalization)
  Sender: FDA-Public Use
  Company Number: US-NOVARTISPH-NVSC2021US104334

PATIENT
  Sex: Male

DRUGS (2)
  1. COSENTYX [Suspect]
     Active Substance: SECUKINUMAB
     Indication: Psoriatic arthropathy
     Dosage: 300 MG, QW
     Route: 058
     Dates: start: 20210416
  2. COSENTYX [Suspect]
     Active Substance: SECUKINUMAB
     Dosage: 150 MG, QMO, (EVERY FOUR WEEKS)
     Route: 058

REACTIONS (6)
  - COVID-19 [Unknown]
  - Cough [Unknown]
  - Speech disorder [Unknown]
  - Headache [Unknown]
  - Burn of internal organs [Unknown]
  - Gastrointestinal pain [Unknown]
